FAERS Safety Report 12780285 (Version 1)
Quarter: 2016Q3

REPORT INFORMATION
  Report Type: Spontaneous
  Country: US (occurrence: US)
  Receive Date: 20160923
  Receipt Date: 20160923
  Transmission Date: 20161109
  Serious: Yes (Disabling, Other)
  Sender: FDA-Public Use
  Company Number: None

PATIENT
  Age: 56 Year
  Sex: Male
  Weight: 113.4 kg

DRUGS (11)
  1. TRAMADOL HCL [Concomitant]
     Active Substance: TRAMADOL HYDROCHLORIDE
  2. VITAMIN D3 [Concomitant]
     Active Substance: CHOLECALCIFEROL
  3. VITAMIN B COMPLEX [Concomitant]
     Active Substance: CYANOCOBALAMIN\DEXPANTHENOL\NIACINAMIDE\PYRIDOXINE HYDROCHLORIDE\RIBOFLAVIN 5^-PHOSPHATE SODIUM\THIAMINE HYDROCHLORIDE\VITAMIN B COMPLEX
  4. JANUVIA [Suspect]
     Active Substance: SITAGLIPTIN PHOSPHATE
     Indication: TYPE 2 DIABETES MELLITUS
     Route: 048
     Dates: start: 20150505, end: 20160829
  5. PROMETHAZINE HCL [Concomitant]
     Active Substance: PROMETHAZINE HYDROCHLORIDE
  6. LORAZEPAM. [Concomitant]
     Active Substance: LORAZEPAM
  7. DEXILANT [Concomitant]
     Active Substance: DEXLANSOPRAZOLE
  8. FOLIC ACID. [Concomitant]
     Active Substance: FOLIC ACID
  9. SYNTHROID [Concomitant]
     Active Substance: LEVOTHYROXINE SODIUM
  10. NAPROXEN. [Concomitant]
     Active Substance: NAPROXEN
  11. LISINOPRIL/HCTZ [Concomitant]
     Active Substance: HYDROCHLOROTHIAZIDE\LISINOPRIL

REACTIONS (9)
  - Carpal tunnel syndrome [None]
  - Decreased appetite [None]
  - Peripheral swelling [None]
  - Joint swelling [None]
  - Nausea [None]
  - Anxiety [None]
  - Hyperhidrosis [None]
  - Drug withdrawal syndrome [None]
  - Osteoarthritis [None]

NARRATIVE: CASE EVENT DATE: 20150805
